FAERS Safety Report 8548313-6 (Version None)
Quarter: 2012Q3

REPORT INFORMATION
  Report Type: 
  Country: None (occurrence: None)
  Receive Date: 20120719
  Receipt Date: 20120719
  Transmission Date: 20120928
  Serious: No
  Sender: FDA-Public Use
  Company Number: None

PATIENT
  Sex: Male
  Weight: 76.6579 kg

DRUGS (2)
  1. SIMVASTATIN [Suspect]
     Indication: BLOOD CHOLESTEROL
     Dosage: 20MG 1 DLY MOUTH
     Dates: start: 20120215, end: 20120524
  2. LISINOPRIL [Suspect]
     Indication: BLOOD PRESSURE
     Dosage: 10MG 1 DLY MOUTH
     Dates: start: 20110929, end: 20120611

REACTIONS (3)
  - ASTHENIA [None]
  - MUSCLE ATROPHY [None]
  - MYALGIA [None]
